FAERS Safety Report 7866363-X (Version None)
Quarter: 2011Q4

REPORT INFORMATION
  Report Type: 
  Country: None (occurrence: None)
  Receive Date: 20111028
  Receipt Date: 20110606
  Transmission Date: 20120403
  Serious: No
  Sender: FDA-Public Use
  Company Number: US-GLAXOSMITHKLINE-A0930379A

PATIENT
  Age: 85 Year
  Sex: Female

DRUGS (5)
  1. LASIX [Concomitant]
  2. ALBUTEROL [Concomitant]
  3. SYNTHROID [Concomitant]
  4. ADVAIR DISKUS 100/50 [Suspect]
     Indication: ASTHMA
     Dosage: 1PUFF TWICE PER DAY
     Route: 055
     Dates: start: 20090101
  5. ZEBETA [Concomitant]

REACTIONS (5)
  - ILL-DEFINED DISORDER [None]
  - GAIT DISTURBANCE [None]
  - SOMNOLENCE [None]
  - PRODUCT QUALITY ISSUE [None]
  - FEELING DRUNK [None]
